FAERS Safety Report 7929994-4 (Version None)
Quarter: 2011Q4

REPORT INFORMATION
  Report Type: 
  Country: None (occurrence: None)
  Receive Date: 20111117
  Receipt Date: 20111108
  Transmission Date: 20120403
  Serious: No
  Sender: FDA-Public Use
  Company Number: 2011SP052819

PATIENT
  Sex: Male

DRUGS (4)
  1. DEPAKOTE [Concomitant]
  2. SAPHRIS [Suspect]
     Indication: PSYCHOTIC DISORDER
     Dosage: 10 MG;BID;PO
     Route: 048
  3. SAPHRIS [Suspect]
     Indication: BIPOLAR DISORDER
     Dosage: 10 MG;BID;PO
     Route: 048
  4. HALDOL [Concomitant]

REACTIONS (1)
  - RASH [None]
